FAERS Safety Report 5388246-X (Version None)
Quarter: 2007Q3

REPORT INFORMATION
  Report Type: 
  Country: None (occurrence: None)
  Receive Date: 20070716
  Receipt Date: 20070213
  Transmission Date: 20080115
  Serious: No
  Sender: FDA-Public Use
  Company Number: A0639126A

PATIENT
  Age: 73 Year
  Sex: Male

DRUGS (18)
  1. NICORETTE [Suspect]
  2. NICORETTE [Suspect]
  3. NICORETTE [Suspect]
  4. ACIPHEX [Concomitant]
  5. AMITRIPTYLINE HCL [Concomitant]
  6. ASPIRIN [Concomitant]
  7. CLONAZEPAM [Concomitant]
  8. FLONASE [Concomitant]
  9. ISOSORBIDE DINITRATE [Concomitant]
  10. LEXAPRO [Concomitant]
  11. LIPITOR [Concomitant]
  12. TRIAZOLAM [Concomitant]
  13. ZETIA [Concomitant]
  14. VITAMIN B [Concomitant]
  15. MULTI-VITAMIN [Concomitant]
  16. GLUCOSAMINE SULFATE [Concomitant]
  17. FISH OIL [Concomitant]
  18. VITAMIN D [Concomitant]

REACTIONS (6)
  - BURNING SENSATION [None]
  - CHEILITIS [None]
  - INTENTIONAL DRUG MISUSE [None]
  - LIP EXFOLIATION [None]
  - LIP PAIN [None]
  - LIP SWELLING [None]
